FAERS Safety Report 9841070 (Version 3)
Quarter: 2014Q1

REPORT INFORMATION
  Report Type: Spontaneous
  Country: DE (occurrence: DE)
  Receive Date: 20140124
  Receipt Date: 20140303
  Transmission Date: 20141002
  Serious: Yes (Other)
  Sender: FDA-Public Use
  Company Number: DE-UCBSA-110073

PATIENT
  Age: 23 Year
  Sex: Male

DRUGS (4)
  1. LEVETIRACETAM [Suspect]
     Indication: CONVULSION
     Dosage: 2000 MG
  2. CARBAMAZEPINE [Concomitant]
     Indication: CONVULSION
     Dosage: 1200 MG
  3. CARBAMAZEPINE [Concomitant]
     Indication: CONVULSION
     Dosage: 1500 MG
  4. OXCARBAZEPINE [Concomitant]
     Dosage: 1200 MG

REACTIONS (2)
  - Cardiac arrest [Recovered/Resolved]
  - Drug ineffective [Recovered/Resolved]
